FAERS Safety Report 8633938 (Version 5)
Quarter: 2014Q3

REPORT INFORMATION
  Report Type: Report from Study
  Country: JP (occurrence: JP)
  Receive Date: 20120626
  Receipt Date: 20140701
  Transmission Date: 20150326
  Serious: Yes (Hospitalization, Other)
  Sender: FDA-Public Use
  Company Number: JP-AMGEN-JPNSP2012038566

PATIENT
  Age: 96 Year
  Sex: Female
  Weight: 40 kg

DRUGS (11)
  1. RIKKUNSHITO                        /08041001/ [Concomitant]
     Indication: GASTRITIS
     Route: 048
  2. MOHRUS [Concomitant]
     Active Substance: KETOPROFEN
     Indication: BACK PAIN
     Route: 062
  3. HYALEIN [Concomitant]
     Active Substance: HYALURONATE SODIUM
     Indication: DRY EYE
     Route: 031
  4. ROMIPLOSTIM - KHK [Suspect]
     Active Substance: ROMIPLOSTIM
     Indication: PLATELET FUNCTION TEST ABNORMAL
     Dosage: 7 MUG/KG, QD
     Route: 058
     Dates: start: 20120321, end: 20121205
  5. REVOLADE [Concomitant]
     Active Substance: ELTROMBOPAG
     Indication: PLATELET FUNCTION TEST ABNORMAL
     Dosage: 12.5 MG, QD
     Route: 048
     Dates: start: 20120704, end: 20120715
  6. PARIET [Concomitant]
     Active Substance: RABEPRAZOLE SODIUM
     Indication: GASTRITIS
     Route: 048
  7. AMOBAN [Concomitant]
     Active Substance: ZOPICLONE
     Indication: INSOMNIA
     Route: 048
  8. ARTIST [Concomitant]
     Active Substance: CARVEDILOL
     Indication: CARDIAC FAILURE CONGESTIVE
     Route: 048
  9. SIGMART [Concomitant]
     Active Substance: NICORANDIL
     Indication: CARDIAC FAILURE CONGESTIVE
     Route: 042
  10. BONALON [Concomitant]
     Active Substance: ALENDRONATE SODIUM
     Indication: OSTEOPOROSIS
     Dosage: 35 MG, UNK
     Route: 048
  11. KARY UNI                           /00528801/ [Concomitant]
     Active Substance: PIRENOXINE
     Indication: CATARACT
     Route: 031

REACTIONS (2)
  - Arterial occlusive disease [Recovered/Resolved]
  - Arterial occlusive disease [Recovering/Resolving]

NARRATIVE: CASE EVENT DATE: 20120530
